FAERS Safety Report 15771774 (Version 2)
Quarter: 2019Q1

REPORT INFORMATION
  Report Type: Spontaneous
  Country: US (occurrence: US)
  Receive Date: 20181228
  Receipt Date: 20190107
  Transmission Date: 20190417
  Serious: Yes (Life-Threatening, Hospitalization, Other)
  Sender: FDA-Public Use
  Company Number: US-SAKK-2018SA396169AA

PATIENT
  Age: 76 Year
  Sex: Male

DRUGS (4)
  1. CLOPIDOGREL BISULFATE. [Suspect]
     Active Substance: CLOPIDOGREL BISULFATE
     Indication: ANTIPLATELET THERAPY
     Dosage: LOADED WITH ADDITIONAL 300 MG
  2. ACETYLSALICYLIC ACID [Suspect]
     Active Substance: ASPIRIN
     Indication: ANTIPLATELET THERAPY
     Dosage: 81 MG
  3. CLOPIDOGREL BISULFATE. [Suspect]
     Active Substance: CLOPIDOGREL BISULFATE
     Dosage: 75 MG
  4. HEPARIN [Suspect]
     Active Substance: HEPARIN SODIUM
     Dosage: 12000 IU, TOTAL

REACTIONS (12)
  - Chest pain [Unknown]
  - Troponin I increased [Unknown]
  - Intracardiac mass [Unknown]
  - Hepatic function abnormal [Recovered/Resolved]
  - Musculoskeletal pain [Unknown]
  - Acute right ventricular failure [Recovering/Resolving]
  - Haematoma [Recovered/Resolved]
  - Urine output decreased [Recovered/Resolved]
  - Condition aggravated [Recovered/Resolved]
  - Thrombosis [Recovered/Resolved]
  - Electrocardiogram ST segment elevation [Recovered/Resolved]
  - Cardiac disorder [Unknown]
